FAERS Safety Report 5457690-4 (Version None)
Quarter: 2007Q3

REPORT INFORMATION
  Report Type: 
  Country: None (occurrence: None)
  Receive Date: 20070918
  Receipt Date: 20070309
  Transmission Date: 20080115
  Serious: No
  Sender: FDA-Public Use
  Company Number: US-ASTRAZENECA-2007UW04670

PATIENT
  Age: 54 Year
  Sex: Female
  Weight: 70.3 kg

DRUGS (6)
  1. SEROQUEL [Suspect]
     Indication: SCHIZOAFFECTIVE DISORDER
     Dosage: 25 MG TID AND 200 MG AT BEDTIME
     Route: 048
     Dates: start: 20070206, end: 20070305
  2. SEROQUEL [Suspect]
     Dosage: 50 MG BID AND 300 MG AT BEDTIME
     Route: 048
     Dates: start: 20070309
  3. AMBIEN [Concomitant]
  4. WELLBUTRIN [Concomitant]
  5. MIRTAZAPINE [Concomitant]
  6. REQUIP [Concomitant]

REACTIONS (3)
  - HALLUCINATION, AUDITORY [None]
  - SALIVARY HYPERSECRETION [None]
  - VISION BLURRED [None]
